FAERS Safety Report 11926544 (Version 1)
Quarter: 2016Q1

REPORT INFORMATION
  Report Type: Spontaneous
  Country: US (occurrence: None)
  Receive Date: 20160115
  Receipt Date: 20160115
  Transmission Date: 20160526
  Serious: No
  Sender: FDA-Public Use
  Company Number: None

PATIENT
  Age: 70 Year
  Sex: Female

DRUGS (11)
  1. METFORMIN [Concomitant]
     Active Substance: METFORMIN HYDROCHLORIDE
  2. EXEMESTANE. [Concomitant]
     Active Substance: EXEMESTANE
  3. LISINOPRIL AND HYDROCHLOROTHIAZIDE [Concomitant]
     Active Substance: HYDROCHLOROTHIAZIDE\LISINOPRIL
  4. GLIPIZIDE ER [Concomitant]
     Active Substance: GLIPIZIDE
  5. ASPIRIN. [Concomitant]
     Active Substance: ASPIRIN
  6. MEDROXYPR AC [Concomitant]
  7. RANITIDINE [Concomitant]
     Active Substance: RANITIDINE\RANITIDINE HYDROCHLORIDE
  8. METOPROL TAR [Concomitant]
  9. PRILOSEC [Concomitant]
     Active Substance: OMEPRAZOLE MAGNESIUM
  10. AFINITOR [Suspect]
     Active Substance: EVEROLIMUS
     Indication: NEOPLASM MALIGNANT
     Route: 048
     Dates: start: 20150905
  11. ATORVASTATIN [Concomitant]
     Active Substance: ATORVASTATIN

REACTIONS (8)
  - Weight decreased [None]
  - Renal impairment [None]
  - Diarrhoea [None]
  - Blood iron decreased [None]
  - Blood glucose increased [None]
  - Decreased appetite [None]
  - Nausea [None]
  - Blood glucose decreased [None]

NARRATIVE: CASE EVENT DATE: 20150905
